FAERS Safety Report 9406606 (Version 2)
Quarter: 2013Q3

REPORT INFORMATION
  Report Type: Report from Study
  Country: CN (occurrence: CN)
  Receive Date: 20130718
  Receipt Date: 20130801
  Transmission Date: 20140515
  Serious: Yes (Hospitalization)
  Sender: FDA-Public Use
  Company Number: CN-SANOFI-AVENTIS-2013SA069912

PATIENT
  Age: 44 Year
  Sex: Female
  Weight: 62 kg

DRUGS (8)
  1. INSULIN GLARGINE [Suspect]
     Indication: TYPE 2 DIABETES MELLITUS
     Route: 058
     Dates: start: 20130619, end: 20130621
  2. ATORVASTATIN CALCIUM [Concomitant]
     Indication: HYPERLIPIDAEMIA
     Dates: start: 20130624
  3. METFORMIN [Concomitant]
     Indication: DIABETES MELLITUS
     Dates: start: 20130624
  4. VINPOCETINE [Concomitant]
     Dates: start: 20130624
  5. PIRACETAM [Concomitant]
     Dates: start: 20130624
  6. GASTRODYN [Concomitant]
     Dates: start: 20130624
  7. FENOFIBRATE [Concomitant]
     Indication: HYPERLIPIDAEMIA
  8. MECOBALAMIN [Concomitant]
     Dates: start: 20130624

REACTIONS (1)
  - Spinal osteoarthritis [Recovered/Resolved]
